FAERS Safety Report 8526679 (Version 2)
Quarter: 2019Q4

REPORT INFORMATION
  Report Type: Spontaneous
  Country: DE (occurrence: DE)
  Receive Date: 20120423
  Receipt Date: 20191118
  Transmission Date: 20200122
  Serious: Yes (Other)
  Sender: FDA-Public Use
  Company Number: DE-MYLANLABS-2012S1007442

PATIENT
  Sex: Female
  Weight: 73 kg

DRUGS (7)
  1. PREDNISONE. [Concomitant]
     Active Substance: PREDNISONE
     Indication: INFLAMMATORY BOWEL DISEASE
     Dosage: 15 MG,QD
     Route: 048
     Dates: start: 20110415, end: 20111013
  2. URSODEOXYCHOLIC ACID [Concomitant]
     Active Substance: URSODIOL
     Dosage: UNK
     Route: 048
     Dates: start: 201110, end: 20111013
  3. ORTHOMOL [Concomitant]
     Indication: PROPHYLAXIS OF NEURAL TUBE DEFECT
     Dosage: 0.5 MILLIGRAM
     Route: 048
     Dates: start: 20110316, end: 20111013
  4. ORTHOMOL [Concomitant]
     Indication: NEURAL TUBE DEFECT
  5. AZATHIOPRINE. [Suspect]
     Active Substance: AZATHIOPRINE
     Indication: INFLAMMATORY BOWEL DISEASE
     Dosage: 150 MILLIGRAM
     Route: 048
     Dates: start: 201006, end: 20111013
  6. ATARAX [Suspect]
     Active Substance: HYDROXYZINE HYDROCHLORIDE
     Indication: PRURITUS
     Dosage: 37.5 MG/D DOSAGE WAS ELEVATED FROM 25 TO 37.5 MG/D
     Route: 048
     Dates: start: 20110927, end: 20111026
  7. URSODEOXYCHOLIC ACID [Concomitant]
     Active Substance: URSODIOL
     Indication: CHOLESTASIS
     Dosage: UNK
     Route: 048
     Dates: start: 20110825, end: 201110

REACTIONS (4)
  - Cholestasis [Unknown]
  - Stillbirth [Recovered/Resolved]
  - Maternal exposure during pregnancy [Recovered/Resolved]
  - Influenza like illness [Recovered/Resolved]

NARRATIVE: CASE EVENT DATE: 20110927
